FAERS Safety Report 20134422 (Version 2)
Quarter: 2022Q1

REPORT INFORMATION
  Report Type: Spontaneous
  Country: US (occurrence: US)
  Receive Date: 20211201
  Receipt Date: 20220122
  Transmission Date: 20220423
  Serious: Yes (Death)
  Sender: FDA-Public Use
  Company Number: US-NOVARTISPH-NVSC2021US273595

PATIENT
  Sex: Male

DRUGS (1)
  1. EXELON [Suspect]
     Active Substance: RIVASTIGMINE TARTRATE
     Indication: Parkinson^s disease
     Dosage: UNK (9.5MG/24H 30TTSM)
     Route: 065

REACTIONS (5)
  - Death [Fatal]
  - Dysphagia [Unknown]
  - Wheezing [Unknown]
  - Dyspnoea [Unknown]
  - Communication disorder [Unknown]
